FAERS Safety Report 5388614-6 (Version None)
Quarter: 2007Q3

REPORT INFORMATION
  Report Type: 
  Country: None (occurrence: None)
  Receive Date: 20070711
  Receipt Date: 20070626
  Transmission Date: 20080115
  Serious: Yes (Other)
  Sender: FDA-Public Use
  Company Number: S07-GER-02887-01

PATIENT
  Age: 49 Year
  Sex: Female

DRUGS (5)
  1. ESCITALOPRAM [Suspect]
     Dosage: 10 MG QD PO
     Route: 048
     Dates: start: 20070217, end: 20070217
  2. TRIMIPRAMINE MALEATE [Suspect]
     Dosage: 100 MG QD PO
     Route: 048
     Dates: start: 20070128, end: 20070211
  3. TRIMIPRAMINE MALEATE [Suspect]
     Dosage: 75 MG QD PO
     Route: 048
     Dates: start: 20070212, end: 20070213
  4. BISOPROLOL [Concomitant]
  5. PROMETHAZINE HCL [Concomitant]

REACTIONS (6)
  - AFFECT LABILITY [None]
  - AGITATION [None]
  - NERVOUSNESS [None]
  - RESTLESSNESS [None]
  - SLEEP DISORDER [None]
  - SUICIDAL IDEATION [None]
